FAERS Safety Report 9017553 (Version 1)
Quarter: 2013Q1

REPORT INFORMATION
  Report Type: Spontaneous
  Country: US (occurrence: US)
  Receive Date: 20130117
  Receipt Date: 20130117
  Transmission Date: 20140127
  Serious: Yes (Death)
  Sender: FDA-Public Use
  Company Number: US-INCYTE CORPORATION-2013IN000073

PATIENT
  Age: 84 Year
  Sex: Female

DRUGS (15)
  1. JAKAFI [Suspect]
     Indication: MYELOFIBROSIS
     Dosage: 10 MG, BID
     Route: 048
  2. ALLOPURINOL [Concomitant]
  3. AZOPT [Concomitant]
  4. CARVEDILOL [Concomitant]
  5. PROBIOTIC FEMINA [Concomitant]
  6. EXJADE [Concomitant]
  7. LASIX [Concomitant]
  8. NEURONTIN [Concomitant]
  9. HYDROXYUREA [Concomitant]
  10. OMEPRAZOLE [Concomitant]
  11. SEROQUEL [Concomitant]
  12. SERTRALINE [Concomitant]
  13. SIMVASTATIN [Concomitant]
  14. SYNTHROID [Concomitant]
  15. VITAMIN D NOS [Concomitant]

REACTIONS (1)
  - Death [Fatal]
